FAERS Safety Report 24963661 (Version 1)
Quarter: 2025Q1

REPORT INFORMATION
  Report Type: Spontaneous
  Country: IT (occurrence: IT)
  Receive Date: 20250213
  Receipt Date: 20250213
  Transmission Date: 20250408
  Serious: Yes (Hospitalization)
  Sender: ROCHE
  Company Number: IT-ROCHE-10000200697

PATIENT
  Age: 79 Year
  Sex: Male

DRUGS (1)
  1. LUNSUMIO [Suspect]
     Active Substance: MOSUNETUZUMAB-AXGB
     Indication: Product used for unknown indication
     Route: 065

REACTIONS (3)
  - Pyrexia [Unknown]
  - Chills [Unknown]
  - Atrial fibrillation [Unknown]
